FAERS Safety Report 7685743-9 (Version None)
Quarter: 2011Q3

REPORT INFORMATION
  Report Type: 
  Country: None (occurrence: None)
  Receive Date: 20110815
  Receipt Date: 20110815
  Transmission Date: 20111222
  Serious: No
  Sender: FDA-Public Use
  Company Number: None

PATIENT
  Sex: Male
  Weight: 87.089 kg

DRUGS (14)
  1. ASPIRIN [Concomitant]
  2. MULTI-VITAMIN [Concomitant]
  3. FISH OIL [Concomitant]
  4. CITALOPRAM HYDROBROMIDE [Concomitant]
  5. ALPRAZOLAM [Concomitant]
  6. AVELOX [Suspect]
     Dosage: 400 MG
     Route: 048
  7. SIMAVASTATIN [Concomitant]
  8. ATENOLOL [Concomitant]
  9. CREAON [Concomitant]
  10. MORPHINE SULFATE [Concomitant]
  11. PROMETHAZINE [Concomitant]
  12. ANDROGEL [Concomitant]
  13. OMEPRAZOLE [Concomitant]
  14. HYDROCODONE BITARTRATE AND ACETAMINOPHEN [Concomitant]

REACTIONS (2)
  - INCORRECT DRUG ADMINISTRATION DURATION [None]
  - NEUROPATHY PERIPHERAL [None]
